FAERS Safety Report 15612743 (Version 1)
Quarter: 2018Q4

REPORT INFORMATION
  Report Type: Other
  Country: JP (occurrence: JP)
  Receive Date: 20181113
  Receipt Date: 20181113
  Transmission Date: 20190205
  Serious: Yes (Death)
  Sender: FDA-Public Use
  Company Number: JP-ALLIED PHARMA, LLC-2058776

PATIENT
  Sex: Male
  Weight: 61 kg

DRUGS (5)
  1. KALETRA [Interacting]
     Active Substance: LOPINAVIR\RITONAVIR
     Route: 065
  2. CLARITHROMYCIN. [Suspect]
     Active Substance: CLARITHROMYCIN
     Indication: ORAL MUCOSAL ERUPTION
     Route: 065
  3. SILDENAFIL. [Interacting]
     Active Substance: SILDENAFIL
     Route: 065
  4. DIPHENHYDRAMINE. [Suspect]
     Active Substance: DIPHENHYDRAMINE
     Route: 065
  5. EPZICOM [Concomitant]
     Active Substance: ABACAVIR SULFATE\LAMIVUDINE
     Route: 065

REACTIONS (3)
  - Drug interaction [Fatal]
  - Toxicity to various agents [Fatal]
  - Sudden cardiac death [Fatal]
